FAERS Safety Report 8301863-X (Version None)
Quarter: 2012Q2

REPORT INFORMATION
  Report Type: 
  Country: None (occurrence: None)
  Receive Date: 20120417
  Receipt Date: 20120405
  Transmission Date: 20120825
  Serious: Yes (Other)
  Sender: FDA-Public Use
  Company Number: JPI-P-020819

PATIENT
  Age: 41 Year
  Sex: Female
  Weight: 63.05 kg

DRUGS (6)
  1. CITALOPRAM HYDROBROMIDE [Concomitant]
  2. XYREM [Suspect]
     Indication: SOMNOLENCE
     Dosage: 6 GM (3 GM, 2 IN 1 D), ORAL, ORAL, 9 GM (4.5 GM, 2 IN 1 D), ORAL
     Route: 048
     Dates: start: 20060106
  3. XYREM [Suspect]
     Indication: NARCOLEPSY
     Dosage: 6 GM (3 GM, 2 IN 1 D), ORAL, ORAL, 9 GM (4.5 GM, 2 IN 1 D), ORAL
     Route: 048
     Dates: start: 20060106
  4. XYREM [Suspect]
     Indication: SOMNOLENCE
     Dosage: 6 GM (3 GM, 2 IN 1 D), ORAL, ORAL, 9 GM (4.5 GM, 2 IN 1 D), ORAL
     Route: 048
     Dates: start: 20110119
  5. XYREM [Suspect]
     Indication: NARCOLEPSY
     Dosage: 6 GM (3 GM, 2 IN 1 D), ORAL, ORAL, 9 GM (4.5 GM, 2 IN 1 D), ORAL
     Route: 048
     Dates: start: 20110119
  6. LAMOTRGINE [Concomitant]

REACTIONS (10)
  - DYSKINESIA [None]
  - INCREASED APPETITE [None]
  - HAND FRACTURE [None]
  - DECREASED APPETITE [None]
  - WEIGHT DECREASED [None]
  - MALAISE [None]
  - DRUG EFFECT DECREASED [None]
  - WEIGHT INCREASED [None]
  - TONGUE PARALYSIS [None]
  - DYSGEUSIA [None]
